FAERS Safety Report 13002346 (Version 1)
Quarter: 2016Q4

REPORT INFORMATION
  Report Type: Spontaneous
  Country: US (occurrence: US)
  Receive Date: 20161206
  Receipt Date: 20161206
  Transmission Date: 20170207
  Serious: Yes (Death)
  Sender: FDA-Public Use
  Company Number: US-JNJFOC-20161204403

PATIENT
  Sex: Male
  Weight: 60 kg

DRUGS (12)
  1. FENOFIBRATE. [Concomitant]
     Active Substance: FENOFIBRATE
  2. ASPIRIN. [Concomitant]
     Active Substance: ASPIRIN
  3. CARVEDILOL. [Concomitant]
     Active Substance: CARVEDILOL
  4. LEVOTHYROXINE. [Concomitant]
     Active Substance: LEVOTHYROXINE
  5. SPIRONOLACTONE. [Concomitant]
     Active Substance: SPIRONOLACTONE
  6. IMBRUVICA [Suspect]
     Active Substance: IBRUTINIB
     Indication: PRODUCT USED FOR UNKNOWN INDICATION
     Route: 048
     Dates: start: 20141006
  7. VITAMIN D [Concomitant]
     Active Substance: CHOLECALCIFEROL
  8. LISINOPRIL. [Concomitant]
     Active Substance: LISINOPRIL
  9. AMIODARONE [Concomitant]
     Active Substance: AMIODARONE
  10. ATORVASTATIN [Concomitant]
     Active Substance: ATORVASTATIN
  11. METFORMIN [Concomitant]
     Active Substance: METFORMIN HYDROCHLORIDE
  12. FISH OIL [Concomitant]
     Active Substance: FISH OIL

REACTIONS (1)
  - Death [Fatal]
